FAERS Safety Report 5388392-0 (Version None)
Quarter: 2007Q3

REPORT INFORMATION
  Report Type: 
  Country: None (occurrence: None)
  Receive Date: 20070712
  Receipt Date: 20070702
  Transmission Date: 20080115
  Serious: Yes (Other)
  Sender: FDA-Public Use
  Company Number: 2007RR-08332

PATIENT
  Age: 18 Year
  Sex: Male

DRUGS (1)
  1. ISTORETINOIN(ISOTRETINOIN) UNKNOWN [Suspect]
     Indication: ACNE
     Dosage: 25 MG, QD

REACTIONS (1)
  - SACROILIITIS [None]
